FAERS Safety Report 9650561 (Version 2)
Quarter: 2013Q4

REPORT INFORMATION
  Report Type: Spontaneous
  Country: US (occurrence: US)
  Receive Date: 20131029
  Receipt Date: 20131219
  Transmission Date: 20140711
  Serious: Yes (Death)
  Sender: FDA-Public Use
  Company Number: US-BIOGENIDEC-2013BI103402

PATIENT
  Sex: Female

DRUGS (1)
  1. AVONEX [Suspect]
     Indication: MULTIPLE SCLEROSIS
     Route: 030
     Dates: start: 19981201, end: 2004

REACTIONS (4)
  - Cardiac failure [Fatal]
  - Coma [Unknown]
  - Multiple sclerosis [Unknown]
  - Cardiac disorder [Unknown]
